FAERS Safety Report 4455671-0 (Version None)
Quarter: 2004Q3

REPORT INFORMATION
  Report Type: 
  Country: None (occurrence: None)
  Receive Date: 20040920
  Receipt Date: 20040920
  Transmission Date: 20050211
  Serious: No
  Sender: FDA-Public Use
  Company Number: None

PATIENT
  Sex: Female
  Weight: 69.4003 kg

DRUGS (3)
  1. GENERIC ULTRAM [Suspect]
     Indication: OSTEOARTHRITIS
     Dosage: 50 MG 4-6 HRS PRN
  2. GENERIC ULTRAM [Suspect]
     Indication: PAIN
     Dosage: 50 MG 4-6 HRS PRN
  3. GENERIC ULTRAM [Suspect]
     Indication: RADICULAR PAIN
     Dosage: 50 MG 4-6 HRS PRN

REACTIONS (2)
  - DRUG EFFECT DECREASED [None]
  - PHARMACEUTICAL PRODUCT COMPLAINT [None]
